FAERS Safety Report 6690410-4 (Version None)
Quarter: 2010Q2

REPORT INFORMATION
  Report Type: 
  Country: None (occurrence: None)
  Receive Date: 20100421
  Receipt Date: 20090916
  Transmission Date: 20101027
  Serious: No
  Sender: FDA-Public Use
  Company Number: US-ASTRAZENECA-2009SE12416

PATIENT
  Age: 30292 Day
  Sex: Male
  Weight: 90.7 kg

DRUGS (11)
  1. CASODEX [Suspect]
     Indication: PROSTATE CANCER
     Route: 048
     Dates: start: 20090812
  2. LIPITOR [Concomitant]
  3. GLYBURIDE [Concomitant]
  4. METFORMIN [Concomitant]
  5. OMEPRAZOLE [Concomitant]
  6. ATENOLOL [Concomitant]
  7. ETODOLAC [Concomitant]
  8. PENTOXIFYLLINE [Concomitant]
  9. TRANDOLAPRIL [Concomitant]
  10. AMITRIPTYLINE [Concomitant]
  11. OXYCODONE [Concomitant]

REACTIONS (1)
  - DYSGEUSIA [None]
